FAERS Safety Report 5367483-4 (Version None)
Quarter: 2007Q2

REPORT INFORMATION
  Report Type: 
  Country: None (occurrence: None)
  Receive Date: 20070622
  Receipt Date: 20060912
  Transmission Date: 20071010
  Serious: No
  Sender: FDA-Public Use
  Company Number: US-ASTRAZENECA-2006UW17118

PATIENT
  Age: 88 Year
  Sex: Female

DRUGS (4)
  1. PULMICORT RESPULES [Suspect]
     Indication: ASTHMA
     Route: 055
     Dates: start: 20050101
  2. ATIVAN [Concomitant]
  3. PREVACID [Concomitant]
  4. THYROID TAB [Concomitant]

REACTIONS (1)
  - ASTHENIA [None]
